FAERS Safety Report 9850678 (Version 1)
Quarter: 2014Q1

REPORT INFORMATION
  Report Type: Spontaneous
  Country: US (occurrence: US)
  Receive Date: 20140128
  Receipt Date: 20140128
  Transmission Date: 20141002
  Serious: No
  Sender: FDA-Public Use
  Company Number: US-TEVA-383657USA

PATIENT
  Age: 69 Year
  Sex: Female

DRUGS (2)
  1. SALBUTAMOL [Suspect]
     Indication: ASTHMA
     Dosage: 90 MICROGRAM DAILY;
     Dates: end: 20130120
  2. TUDORZA PRESSAIR (ACLININIUM BROMIDE [Suspect]
     Indication: ASTHMA
     Dosage: 800 MICROGRAM DAILY; POWDER
     Dates: start: 20130115, end: 20130120

REACTIONS (3)
  - Burning sensation [Not Recovered/Not Resolved]
  - Chest pain [Not Recovered/Not Resolved]
  - Off label use [Unknown]
